FAERS Safety Report 6639799-2 (Version None)
Quarter: 2010Q1

REPORT INFORMATION
  Report Type: 
  Country: None (occurrence: None)
  Receive Date: 20100315
  Receipt Date: 20100302
  Transmission Date: 20100710
  Serious: Yes (Death, Hospitalization)
  Sender: FDA-Public Use
  Company Number: GB-2010-0475

PATIENT

DRUGS (3)
  1. VINORELBINE [Suspect]
     Indication: NON-SMALL CELL LUNG CANCER
     Dosage: 25 MG/M2 IV
     Route: 042
  2. NAVELBINE [Suspect]
     Indication: NON-SMALL CELL LUNG CANCER
     Dosage: 60 MG/M2 PO
     Route: 048
  3. CARBOPLATIN [Suspect]
     Indication: NON-SMALL CELL LUNG CANCER

REACTIONS (2)
  - NEUTROPENIC SEPSIS [None]
  - SEPTIC SHOCK [None]
